FAERS Safety Report 10658361 (Version 2)
Quarter: 2015Q1

REPORT INFORMATION
  Report Type: Spontaneous
  Country: US (occurrence: US)
  Receive Date: 20141217
  Receipt Date: 20150213
  Transmission Date: 20150720
  Serious: Yes (Life-Threatening, Hospitalization, Other)
  Sender: FDA-Public Use
  Company Number: US-JNJFOC-20141208220

PATIENT
  Age: 8 Month
  Sex: Female
  Weight: 8.62 kg

DRUGS (6)
  1. TYLENOL [Suspect]
     Active Substance: ACETAMINOPHEN
     Indication: RESPIRATORY SYNCYTIAL VIRUS INFECTION
     Dosage: (540MG - 675MG DAILY)
     Route: 048
     Dates: start: 20081208, end: 20081213
  2. CHILDRENS MOTRIN [Suspect]
     Active Substance: IBUPROFEN
     Route: 048
  3. TYLENOL [Suspect]
     Active Substance: ACETAMINOPHEN
     Indication: PYREXIA
     Dosage: (540MG - 675MG DAILY)
     Route: 048
     Dates: start: 20081208, end: 20081213
  4. CHILDRENS MOTRIN [Suspect]
     Active Substance: IBUPROFEN
     Indication: PYREXIA
     Dosage: 1/2 TEASPOON EVERY 6 HOURS
     Route: 048
     Dates: start: 20081211
  5. AZITHROMYCIN [Concomitant]
     Active Substance: AZITHROMYCIN ANHYDROUS
     Indication: OTITIS MEDIA
     Route: 065
     Dates: start: 200812
  6. ALBUTEROL. [Concomitant]
     Active Substance: ALBUTEROL
     Indication: RESPIRATORY SYNCYTIAL VIRUS INFECTION
     Route: 065
     Dates: start: 200812

REACTIONS (2)
  - Acute hepatic failure [Unknown]
  - Overdose [Unknown]

NARRATIVE: CASE EVENT DATE: 200812
